FAERS Safety Report 12960451 (Version 2)
Quarter: 2017Q1

REPORT INFORMATION
  Report Type: Spontaneous
  Country: US (occurrence: US)
  Receive Date: 20161121
  Receipt Date: 20170117
  Transmission Date: 20170428
  Serious: Yes (Other)
  Sender: FDA-Public Use
  Company Number: US-INCYTE CORPORATION-2016IN007267

PATIENT
  Age: 89 Year
  Sex: Male
  Weight: 64.4 kg

DRUGS (1)
  1. JAKAFI [Suspect]
     Active Substance: RUXOLITINIB
     Indication: MYELOFIBROSIS
     Dosage: 5 MG, BID
     Route: 048
     Dates: start: 20161109

REACTIONS (2)
  - Haemoglobin decreased [Unknown]
  - Night sweats [Unknown]

NARRATIVE: CASE EVENT DATE: 20161110
